FAERS Safety Report 16620250 (Version 1)
Quarter: 2019Q3

REPORT INFORMATION
  Report Type: Spontaneous
  Country: US (occurrence: US)
  Receive Date: 20190723
  Receipt Date: 20190723
  Transmission Date: 20191004
  Serious: No
  Sender: FDA-Public Use
  Company Number: US-IGSA-SR10008237

PATIENT
  Age: 23 Year
  Sex: Male

DRUGS (4)
  1. SOLU-MEDROL [Concomitant]
     Active Substance: METHYLPREDNISOLONE SODIUM SUCCINATE
     Indication: PREMEDICATION
     Dosage: 250 MG, UNK
     Route: 042
  2. GAMUNEX-C [Suspect]
     Active Substance: HUMAN IMMUNOGLOBULIN G
     Dosage: 20 G, Q.WK.
     Route: 042
     Dates: start: 20190403
  3. GAMUNEX-C [Suspect]
     Active Substance: HUMAN IMMUNOGLOBULIN G
     Indication: MULTIFOCAL MOTOR NEUROPATHY
     Dosage: 5 G, Q.WK.
     Route: 042
     Dates: start: 20190403
  4. GAMUNEX-C [Suspect]
     Active Substance: HUMAN IMMUNOGLOBULIN G
     Dosage: 25 G, Q.WK.
     Dates: start: 20190513, end: 20190513

REACTIONS (7)
  - Headache [Recovered/Resolved]
  - Asthenia [Recovered/Resolved]
  - Back pain [Recovered/Resolved]
  - Tremor [Recovered/Resolved]
  - Pyrexia [Recovered/Resolved]
  - Heart rate increased [Recovered/Resolved]
  - Dizziness [Recovered/Resolved]

NARRATIVE: CASE EVENT DATE: 20190411
